FAERS Safety Report 8288246-6 (Version None)
Quarter: 2012Q2

REPORT INFORMATION
  Report Type: 
  Country: None (occurrence: None)
  Receive Date: 20120416
  Receipt Date: 20120404
  Transmission Date: 20120825
  Serious: Yes (Hospitalization)
  Sender: FDA-Public Use
  Company Number: US-CELGENEUS-163-50794-12022477

PATIENT
  Age: 66 Year
  Sex: Female
  Weight: 64.9 kg

DRUGS (10)
  1. MYLOTARG [Suspect]
     Dosage: 3 MILLIGRAM/SQ. METER
     Route: 041
     Dates: start: 20111004, end: 20111011
  2. ZOLINZA [Suspect]
     Dosage: 400 MILLIGRAM
     Route: 048
     Dates: start: 20111104, end: 20111112
  3. VIDAZA [Suspect]
     Dosage: 75 MILLIGRAM/SQ. METER
     Route: 065
     Dates: start: 20111004, end: 20111010
  4. MYLOTARG [Suspect]
     Route: 041
     Dates: end: 20111111
  5. ZOLINZA [Suspect]
     Dosage: 400 MILLIGRAM
     Route: 048
     Dates: start: 20111004, end: 20111012
  6. HYDROCODONE [Concomitant]
     Route: 065
  7. LIPITOR [Concomitant]
     Route: 065
  8. VIDAZA [Suspect]
     Dosage: 75 MILLIGRAM/SQ. METER
     Route: 065
     Dates: start: 20111104
  9. DIPHENHYDRAMINE HCL [Concomitant]
     Route: 065
  10. LEVOTHYROXINE SODIUM [Concomitant]
     Route: 065

REACTIONS (7)
  - PLEURAL EFFUSION [None]
  - WHITE BLOOD CELL COUNT DECREASED [None]
  - NEUTROPHIL COUNT DECREASED [None]
  - CARDIAC FAILURE [None]
  - FEBRILE NEUTROPENIA [None]
  - INJECTION SITE REACTION [None]
  - PNEUMONIA [None]
